FAERS Safety Report 18969763 (Version 2)
Quarter: 2023Q1

REPORT INFORMATION
  Report Type: Report from Study
  Country: US (occurrence: US)
  Receive Date: 20210304
  Receipt Date: 20230117
  Transmission Date: 20230417
  Serious: Yes (Other)
  Sender: FDA-Public Use
  Company Number: US-TAKEDA-US202012774

PATIENT
  Sex: Female

DRUGS (3)
  1. HUMAN IMMUNOGLOBULIN G [Suspect]
     Active Substance: HUMAN IMMUNOGLOBULIN G
     Indication: Immunodeficiency common variable
     Dosage: 60 GRAM, MONTHLY
     Route: 042
  2. HUMAN IMMUNOGLOBULIN G [Suspect]
     Active Substance: HUMAN IMMUNOGLOBULIN G
     Indication: Primary immunodeficiency syndrome
  3. HYDROXYCHLOROQUINE [Concomitant]
     Active Substance: HYDROXYCHLOROQUINE
     Indication: Rheumatoid arthritis
     Dosage: UNK
     Route: 065
     Dates: start: 2007

REACTIONS (13)
  - Sciatic nerve injury [Unknown]
  - Rheumatoid arthritis [Unknown]
  - Osteoporosis [Unknown]
  - Alpha-1 antitrypsin deficiency [Unknown]
  - Vitamin D decreased [Unknown]
  - Abdominal discomfort [Unknown]
  - Catheter site bruise [Unknown]
  - Vitamin B12 decreased [Unknown]
  - Asthma [Unknown]
  - Dyspepsia [Unknown]
  - Fatigue [Unknown]
  - Anaemia [Unknown]
  - Inability to afford medication [Unknown]
